FAERS Safety Report 16580134 (Version 2)
Quarter: 2019Q3

REPORT INFORMATION
  Report Type: Spontaneous
  Country: DE (occurrence: DE)
  Receive Date: 20190716
  Receipt Date: 20190716
  Transmission Date: 20191004
  Serious: Yes (Life-Threatening, Other)
  Sender: FDA-Public Use
  Company Number: DE-PFIZER INC-2019293415

PATIENT
  Age: 26 Year
  Sex: Female

DRUGS (3)
  1. RAMIPRIL. [Suspect]
     Active Substance: RAMIPRIL
     Indication: CARDIAC FAILURE CONGESTIVE
     Dosage: 5 MG, QD
  2. METOPROLOL. [Concomitant]
     Active Substance: METOPROLOL
     Dosage: UNK
  3. LEVOSIMENDAN [Concomitant]
     Active Substance: LEVOSIMENDAN
     Dosage: UNK (24 HOUR INFUSION)

REACTIONS (1)
  - Sputum increased [Recovered/Resolved]
